FAERS Safety Report 15974858 (Version 1)
Quarter: 2019Q1

REPORT INFORMATION
  Report Type: Spontaneous
  Country: FR (occurrence: FR)
  Receive Date: 20190218
  Receipt Date: 20190218
  Transmission Date: 20190418
  Serious: Yes (Hospitalization)
  Sender: FDA-Public Use
  Company Number: FR-SA-2019SA041904

PATIENT
  Age: 11 Month
  Sex: Male
  Weight: 9.22 kg

DRUGS (1)
  1. RIFADINE [Suspect]
     Active Substance: RIFAMPIN
     Indication: MASTOIDITIS
     Dosage: 20 ML, 1X
     Route: 041
     Dates: start: 20181231

REACTIONS (2)
  - Oedema [Recovered/Resolved]
  - Administration site extravasation [Recovered/Resolved]

NARRATIVE: CASE EVENT DATE: 20181231
